FAERS Safety Report 12480991 (Version 4)
Quarter: 2016Q3

REPORT INFORMATION
  Report Type: Spontaneous
  Country: DE (occurrence: DE)
  Receive Date: 20160620
  Receipt Date: 20160809
  Transmission Date: 20161109
  Serious: Yes (Death, Other)
  Sender: FDA-Public Use
  Company Number: DE-BRISTOL-MYERS SQUIBB COMPANY-BMS-2016-045737

PATIENT
  Age: 57 Year
  Sex: Male
  Weight: 84 kg

DRUGS (5)
  1. GEMTUZUMAB [Suspect]
     Active Substance: GEMTUZUMAB OZOGAMICIN
     Indication: ACUTE MYELOID LEUKAEMIA
     Dosage: 6.14 MG, QD
     Route: 042
     Dates: start: 20160428, end: 20160428
  2. CYTARABINE. [Suspect]
     Active Substance: CYTARABINE
     Indication: ACUTE MYELOID LEUKAEMIA
     Dosage: 204 MG, QD
     Route: 042
     Dates: start: 20160427, end: 20160505
  3. TRETINOIN. [Suspect]
     Active Substance: TRETINOIN
     Indication: ACUTE MYELOID LEUKAEMIA
     Dosage: 30.6 MG, UNK
     Route: 048
     Dates: start: 20160503, end: 20160508
  4. ETOPOSIDE PHOSPHATE [Suspect]
     Active Substance: ETOPOSIDE PHOSPHATE
     Indication: ACUTE MYELOID LEUKAEMIA
     Dosage: 204 MG, QD
     Route: 042
     Dates: start: 20160427, end: 20160512
  5. IDARUBICIN [Suspect]
     Active Substance: IDARUBICIN
     Indication: ACUTE MYELOID LEUKAEMIA
     Dosage: 24.48 MG, QD
     Route: 042
     Dates: start: 20160427, end: 20160501

REACTIONS (3)
  - Dehydration [Fatal]
  - Off label use [Unknown]
  - Diabetes insipidus [Fatal]

NARRATIVE: CASE EVENT DATE: 20160515
